FAERS Safety Report 6182838-6 (Version None)
Quarter: 2009Q2

REPORT INFORMATION
  Report Type: 
  Country: None (occurrence: None)
  Receive Date: 20090507
  Receipt Date: 20090505
  Transmission Date: 20091009
  Serious: Yes (Other)
  Sender: FDA-Public Use
  Company Number: US-BAYER-200914516NA

PATIENT
  Age: 71 Year
  Sex: Male
  Weight: 78 kg

DRUGS (5)
  1. LEVITRA [Suspect]
     Indication: ERECTILE DYSFUNCTION
  2. TYLENOL [Concomitant]
  3. CLARINEX [Concomitant]
  4. VALTREX [Concomitant]
  5. COUMADIN [Concomitant]

REACTIONS (1)
  - PHOTOPHOBIA [None]
